FAERS Safety Report 19286138 (Version 2)
Quarter: 2021Q2

REPORT INFORMATION
  Report Type: Spontaneous
  Country: BR (occurrence: BR)
  Receive Date: 20210521
  Receipt Date: 20210630
  Transmission Date: 20210717
  Serious: Yes (Other)
  Sender: FDA-Public Use
  Company Number: BR-PFIZER INC-2021504116

PATIENT
  Age: 42 Year
  Sex: Male

DRUGS (1)
  1. GENOTROPIN [Suspect]
     Active Substance: SOMATROPIN
     Indication: HYPOPITUITARISM
     Dosage: 0.3 MG, DAILY, UPON WAKING UP IN THE MORNING
     Dates: start: 202104

REACTIONS (5)
  - Muscle rupture [Recovering/Resolving]
  - Incorrect dose administered by device [Unknown]
  - Poor quality device used [Unknown]
  - Injection site extravasation [Unknown]
  - Device leakage [Unknown]

NARRATIVE: CASE EVENT DATE: 202104
